FAERS Safety Report 8635065 (Version 3)
Quarter: 2013Q2

REPORT INFORMATION
  Report Type: Report from Study
  Country: CZ (occurrence: CZ)
  Receive Date: 20120626
  Receipt Date: 20130501
  Transmission Date: 20140414
  Serious: Yes (Death, Hospitalization)
  Sender: FDA-Public Use
  Company Number: CZ-PFIZER INC-2012149911

PATIENT
  Age: 65 Year
  Sex: Male

DRUGS (10)
  1. MEDROL [Suspect]
     Indication: PULMONARY SARCOIDOSIS
     Dosage: 32 MG
     Dates: start: 20120316
  2. BLINDED THERAPY [Suspect]
     Indication: TYPE 2 DIABETES MELLITUS
     Dosage: SAXAGLIPTIN/PLACEBO
     Dates: start: 20101027
  3. STADAMET [Suspect]
     Indication: TYPE 2 DIABETES MELLITUS
     Dosage: 1500 MG
     Dates: end: 20120330
  4. INSULIN [Suspect]
     Indication: TYPE 2 DIABETES MELLITUS
     Dosage: 36 IU
     Dates: start: 20120330
  5. THEOPHYLLINE [Concomitant]
     Dosage: UNK
  6. CALCICHEW [Concomitant]
     Dosage: UNK
  7. CARDILAN [Concomitant]
     Dosage: UNK
     Dates: start: 20120410
  8. SYNTOPHYLLIN [Concomitant]
  9. AMBROBENE [Concomitant]
  10. SOLU-MEDROL [Concomitant]

REACTIONS (9)
  - Respiratory failure [Fatal]
  - Subdiaphragmatic abscess [Not Recovered/Not Resolved]
  - Pneumonia [Recovered/Resolved]
  - Pancreatitis [Not Recovered/Not Resolved]
  - Hyperglycaemia [Recovered/Resolved]
  - Myocardial ischaemia [Unknown]
  - Cholelithiasis [Not Recovered/Not Resolved]
  - Supraventricular tachycardia [Recovered/Resolved]
  - Pulmonary sarcoidosis [Not Recovered/Not Resolved]
